FAERS Safety Report 24233167 (Version 1)
Quarter: 2024Q3

REPORT INFORMATION
  Report Type: Spontaneous
  Country: US (occurrence: US)
  Receive Date: 20240821
  Receipt Date: 20240821
  Transmission Date: 20241017
  Serious: Yes (Other)
  Sender: PFIZER
  Company Number: US-PFIZER INC-202400239424

PATIENT
  Age: 67 Year
  Sex: Female
  Weight: 82.55 kg

DRUGS (1)
  1. BRAFTOVI [Suspect]
     Active Substance: ENCORAFENIB
     Indication: Colorectal cancer
     Dosage: 75MG (FOUR CAPSULES) DAILY
     Route: 048
     Dates: start: 20240819

REACTIONS (3)
  - Product use complaint [Recovered/Resolved]
  - Choking [Recovered/Resolved]
  - Product size issue [Recovered/Resolved]

NARRATIVE: CASE EVENT DATE: 20240819
